FAERS Safety Report 12535324 (Version 2)
Quarter: 2016Q3

REPORT INFORMATION
  Report Type: Report from Study
  Country: US (occurrence: US)
  Receive Date: 20160707
  Receipt Date: 20160720
  Transmission Date: 20161109
  Serious: Yes (Hospitalization, Other)
  Sender: FDA-Public Use
  Company Number: US-AMGEN-USASL2016086178

PATIENT
  Age: 82 Year
  Sex: Female

DRUGS (1)
  1. REPATHA [Suspect]
     Active Substance: EVOLOCUMAB
     Indication: BLOOD CHOLESTEROL INCREASED
     Dosage: 140 MG, Q2WK
     Route: 058

REACTIONS (5)
  - Renal impairment [Unknown]
  - Visual impairment [Unknown]
  - Blood pressure increased [Unknown]
  - Presyncope [Unknown]
  - Heart rate increased [Unknown]

NARRATIVE: CASE EVENT DATE: 201606
